FAERS Safety Report 25408421 (Version 1)
Quarter: 2025Q2

REPORT INFORMATION
  Report Type: Spontaneous
  Country: DE (occurrence: DE)
  Receive Date: 20250606
  Receipt Date: 20250606
  Transmission Date: 20250716
  Serious: Yes (Other)
  Sender: Harrow Health
  Company Number: DE-HARROW-HAR-2025-DE-00219

PATIENT
  Sex: Male

DRUGS (5)
  1. NEVANAC [Suspect]
     Active Substance: NEPAFENAC
     Indication: Cataract operation
     Dates: start: 202411, end: 202412
  2. NEVANAC [Suspect]
     Active Substance: NEPAFENAC
     Indication: Prophylaxis
  3. NEVANAC [Suspect]
     Active Substance: NEPAFENAC
     Indication: Macular oedema
     Dates: start: 2025
  4. CANDESARTAN [Suspect]
     Active Substance: CANDESARTAN
     Indication: Hypertension
  5. SIMVASTATIN [Concomitant]
     Active Substance: SIMVASTATIN

REACTIONS (4)
  - Macular oedema [Not Recovered/Not Resolved]
  - Retinal vein occlusion [Unknown]
  - Drug ineffective for unapproved indication [Unknown]
  - Off label use [Unknown]

NARRATIVE: CASE EVENT DATE: 20250101
